FAERS Safety Report 23291184 (Version 2)
Quarter: 2023Q4

REPORT INFORMATION
  Report Type: Spontaneous
  Country: US (occurrence: US)
  Receive Date: 20231213
  Receipt Date: 20231228
  Transmission Date: 20240109
  Serious: Yes (Hospitalization, Other)
  Sender: FDA-Public Use
  Company Number: US-HETERO-HET2023US03499

PATIENT
  Age: 59 Year
  Sex: Female

DRUGS (9)
  1. LITHIUM [Interacting]
     Active Substance: LITHIUM
     Indication: Major depression
     Dosage: 450 MILLIGRAM IN THE EVENING, WITH A CORRESPONDING LEVEL OF 0.5 MILLI-EQUIVALENTS PER LITER
     Route: 065
  2. LITHIUM [Interacting]
     Active Substance: LITHIUM
     Dosage: 300 MILLIGRAM (LEVEL 0.3 MILLI-EQUIVALENTS PER LITER)
     Route: 065
  3. CLOZAPINE [Interacting]
     Active Substance: CLOZAPINE
     Indication: Major depression
     Dosage: 75 MILLIGRAM, Q.A.M.
     Route: 065
  4. CLOZAPINE [Interacting]
     Active Substance: CLOZAPINE
     Dosage: 125 MG OVER 10 DAYS, WITH A LEVEL OF 312 MICRO-GRAM PER LITER
     Route: 065
  5. CLOZAPINE [Interacting]
     Active Substance: CLOZAPINE
     Dosage: 25 MILLIGRAM, Q.A.M.
     Route: 065
  6. CLOZAPINE [Interacting]
     Active Substance: CLOZAPINE
     Dosage: 50 MILLIGRAM IN THE EVENING
     Route: 065
  7. CLOZAPINE [Interacting]
     Active Substance: CLOZAPINE
     Dosage: CLOZAPINE WAS INCREASED TO THE PREVIOUS DOSE OF 75 MG IN THE MORNING
     Route: 065
  8. CLOZAPINE [Interacting]
     Active Substance: CLOZAPINE
     Dosage: 125 MG IN THE EVENING
     Route: 065
  9. CLOZAPINE [Interacting]
     Active Substance: CLOZAPINE
     Dosage: CLOZAPINE DOSE WAS REDUCED FURTHER TO 50 MG TWICE DAILY
     Route: 065

REACTIONS (2)
  - Myoclonus [Recovered/Resolved]
  - Drug interaction [Unknown]
